FAERS Safety Report 5616139-9 (Version None)
Quarter: 2008Q1

REPORT INFORMATION
  Report Type: 
  Country: None (occurrence: None)
  Receive Date: 20080206
  Receipt Date: 20080131
  Transmission Date: 20080703
  Serious: Yes (Other)
  Sender: FDA-Public Use
  Company Number: US-PFIZER INC-2008010267

PATIENT
  Age: 78 Year
  Sex: Female
  Weight: 66 kg

DRUGS (4)
  1. PROVERA [Suspect]
     Indication: HORMONE REPLACEMENT THERAPY
     Route: 048
     Dates: start: 19820101, end: 20071001
  2. THYROID TAB [Concomitant]
  3. BECONASE [Concomitant]
  4. ATENOLOL [Concomitant]

REACTIONS (9)
  - ARRHYTHMIA [None]
  - ARTHRITIS [None]
  - BLOOD PRESSURE FLUCTUATION [None]
  - DRUG INEFFECTIVE [None]
  - HYPERSENSITIVITY [None]
  - MENOPAUSAL SYMPTOMS [None]
  - PYREXIA [None]
  - STOMACH DISCOMFORT [None]
  - STRESS [None]
